FAERS Safety Report 6824531-X (Version None)
Quarter: 2010Q3

REPORT INFORMATION
  Report Type: 
  Country: None (occurrence: None)
  Receive Date: 20100708
  Receipt Date: 20100702
  Transmission Date: 20110219
  Serious: Yes (Hospitalization, Other)
  Sender: FDA-Public Use
  Company Number: US-MERCK-1001USA01372

PATIENT
  Age: 66 Year
  Sex: Female

DRUGS (1)
  1. FOSAMAX [Suspect]
     Indication: CALCIUM DEFICIENCY
     Route: 048
     Dates: start: 20011101, end: 20090325

REACTIONS (22)
  - ARTHROPATHY [None]
  - BONE DENSITY DECREASED [None]
  - CARDIAC VALVE DISEASE [None]
  - DENTAL CARIES [None]
  - DRY MOUTH [None]
  - FAT TISSUE INCREASED [None]
  - FATIGUE [None]
  - GINGIVAL BLEEDING [None]
  - GINGIVITIS [None]
  - HYPERPROTEINAEMIA [None]
  - LIVER DISORDER [None]
  - MALAISE [None]
  - MIXED INCONTINENCE [None]
  - NEUROPATHY PERIPHERAL [None]
  - OEDEMA MOUTH [None]
  - OROPHARYNGEAL BLISTERING [None]
  - OSTEONECROSIS OF JAW [None]
  - OSTEOPENIA [None]
  - OTITIS EXTERNA [None]
  - PERIODONTITIS [None]
  - SYNCOPE [None]
  - TOOTH FRACTURE [None]
